FAERS Safety Report 24633924 (Version 5)
Quarter: 2025Q2

REPORT INFORMATION
  Report Type: Report from Study
  Country: US (occurrence: US)
  Receive Date: 20241118
  Receipt Date: 20250429
  Transmission Date: 20250717
  Serious: Yes (Other)
  Sender: SUNOVION
  Company Number: US-SUMITOMO PHARMA SWITZERLAND GMBH-2024SPA005012

PATIENT

DRUGS (2)
  1. ORGOVYX [Suspect]
     Active Substance: RELUGOLIX
     Indication: Prostate cancer
     Dosage: 360 MG, SINGLE
     Route: 048
     Dates: start: 20241015, end: 20241015
  2. ORGOVYX [Suspect]
     Active Substance: RELUGOLIX
     Dosage: 120 MG, QD
     Route: 048
     Dates: start: 20241016

REACTIONS (12)
  - Atrial fibrillation [Unknown]
  - Muscular weakness [Unknown]
  - Hypotension [Unknown]
  - Heart rate abnormal [Unknown]
  - Dyspnoea exertional [Unknown]
  - Illness [Unknown]
  - Dizziness postural [Unknown]
  - Fatigue [Unknown]
  - Hot flush [Unknown]
  - Feeling hot [Unknown]
  - Product dose omission in error [Unknown]
  - Therapy interrupted [Unknown]
